FAERS Safety Report 23737969 (Version 1)
Quarter: 2024Q2

REPORT INFORMATION
  Report Type: Spontaneous
  Country: US (occurrence: US)
  Receive Date: 20240412
  Receipt Date: 20240412
  Transmission Date: 20240715
  Serious: Yes (Other)
  Sender: FDA-Public Use
  Company Number: US-BRISTOL-MYERS SQUIBB COMPANY-2024-054996

PATIENT
  Age: 64 Year
  Sex: Male

DRUGS (1)
  1. REVLIMID [Suspect]
     Active Substance: LENALIDOMIDE
     Indication: B-cell lymphoma
     Dosage: FREQUENCY: 1 CAPSULE EVERY DAY 21 DAYS AND A REST WEEK TO COMPLETE A 28 DAY CYCLE
     Route: 048
     Dates: start: 20231211

REACTIONS (1)
  - Drug ineffective [Unknown]
